FAERS Safety Report 25400921 (Version 1)
Quarter: 2025Q2

REPORT INFORMATION
  Report Type: Spontaneous
  Country: DE (occurrence: DE)
  Receive Date: 20250605
  Receipt Date: 20250605
  Transmission Date: 20250716
  Serious: Yes (Death, Other)
  Sender: BRISTOL-MYERS SQUIBB COMPANY
  Company Number: DE-BRISTOL-MYERS SQUIBB COMPANY-2025-079635

PATIENT
  Age: 60 Year
  Sex: Male

DRUGS (2)
  1. OPDIVO [Suspect]
     Active Substance: NIVOLUMAB
     Indication: Peritoneal mesothelioma malignant
     Dates: start: 202301, end: 202303
  2. YERVOY [Suspect]
     Active Substance: IPILIMUMAB
     Indication: Peritoneal mesothelioma malignant
     Dates: start: 202301, end: 202303

REACTIONS (2)
  - Death [Fatal]
  - Off label use [Unknown]

NARRATIVE: CASE EVENT DATE: 20230601
